FAERS Safety Report 14817096 (Version 2)
Quarter: 2018Q2

REPORT INFORMATION
  Report Type: Report from Study
  Country: TW (occurrence: TW)
  Receive Date: 20180426
  Receipt Date: 20180507
  Transmission Date: 20180711
  Serious: Yes (Death, Hospitalization, Other)
  Sender: FDA-Public Use
  Company Number: PHHY2017TW168698

PATIENT
  Age: 91 Year
  Sex: Female
  Weight: 59.6 kg

DRUGS (12)
  1. VALSARTAN. [Concomitant]
     Active Substance: VALSARTAN
     Indication: HYPERTENSION
     Dosage: 160 MG, UNK }3 MONTHS BEFORE VISIT 1
     Route: 048
  2. TASIGNA [Suspect]
     Active Substance: NILOTINIB
     Indication: CHRONIC MYELOID LEUKAEMIA
     Dosage: 600 MG, QD
     Route: 048
     Dates: start: 20160302, end: 20160308
  3. TASIGNA [Suspect]
     Active Substance: NILOTINIB
     Dosage: 300 OT, UNK
     Route: 048
     Dates: start: 20160309, end: 20160321
  4. TASIGNA [Suspect]
     Active Substance: NILOTINIB
     Dosage: 450 OT, UNK
     Route: 048
     Dates: start: 20160502, end: 20160628
  5. LACIDIPINE [Concomitant]
     Active Substance: LACIDIPINE
     Indication: HYPERTENSION
     Dosage: 4 MG, UNK }3 MONTHS BEFORE VISIT 1
     Route: 048
  6. PROPRANOLOL [Concomitant]
     Active Substance: PROPRANOLOL HYDROCHLORIDE
     Indication: ARRHYTHMIA
     Dosage: 5 MG, UNK }3 MONTHS BEFORE VISIT 1
     Route: 048
  7. DOXAZOSIN [Concomitant]
     Active Substance: DOXAZOSIN\DOXAZOSIN MESYLATE
     Indication: HYPERTENSION
     Dosage: 4 MG, UNK }3 MONTHS BEFORE VISIT 1
     Route: 048
  8. WARFARIN [Concomitant]
     Active Substance: WARFARIN
     Indication: PROPHYLAXIS
     Dosage: 2.5 MG, UNK }3 MONTHS BEFORE VISIT 1
     Route: 048
  9. TASIGNA [Suspect]
     Active Substance: NILOTINIB
     Dosage: 600 OT, UNK
     Route: 048
     Dates: start: 20160322, end: 20160501
  10. TASIGNA [Suspect]
     Active Substance: NILOTINIB
     Dosage: 600 OT, UNK
     Route: 048
     Dates: start: 20160629, end: 20171211
  11. ISOSORBIDE DINITRATE. [Concomitant]
     Active Substance: ISOSORBIDE DINITRATE
     Indication: MYOCARDIAL ISCHAEMIA
     Dosage: 10 MG, UNK }3 MONTHS BEFORE VISIT 1
     Route: 048
  12. ALPRAZOLAM. [Concomitant]
     Active Substance: ALPRAZOLAM
     Indication: INSOMNIA
     Dosage: 0.25 MG, UNK }3 MONTHS BEFORE VISIT 1
     Route: 048
     Dates: end: 20160218

REACTIONS (35)
  - Pleurisy [Unknown]
  - Haemoglobin decreased [Unknown]
  - Blood urea increased [Unknown]
  - Platelet count increased [Unknown]
  - Aortic disorder [Unknown]
  - Pubis fracture [Unknown]
  - Musculoskeletal discomfort [Unknown]
  - Blood magnesium increased [Unknown]
  - Blood potassium increased [Unknown]
  - Oedema peripheral [Not Recovered/Not Resolved]
  - Pulmonary function test decreased [Fatal]
  - Skeletal injury [Recovering/Resolving]
  - Basophil count increased [Unknown]
  - Acute respiratory failure [Fatal]
  - Pneumonia [Fatal]
  - Alpha-1 anti-trypsin deficiency [Fatal]
  - Arthralgia [Recovering/Resolving]
  - Aortic arteriosclerosis [Unknown]
  - Spinal osteoarthritis [Unknown]
  - Abnormal faeces [Unknown]
  - Blood glucose increased [Unknown]
  - Urinary tract infection [Fatal]
  - Bone callus excessive [Unknown]
  - Joint range of motion decreased [Recovering/Resolving]
  - White blood cell count increased [Unknown]
  - Mediastinal disorder [Unknown]
  - Flatulence [Unknown]
  - Sacroiliitis [Unknown]
  - Red blood cell count increased [Unknown]
  - Femur fracture [Recovering/Resolving]
  - Lymphocyte count increased [Unknown]
  - Neutrophil count increased [Unknown]
  - Peptic ulcer haemorrhage [Not Recovered/Not Resolved]
  - End stage renal disease [Not Recovered/Not Resolved]
  - Contusion [Not Recovered/Not Resolved]

NARRATIVE: CASE EVENT DATE: 2017
